FAERS Safety Report 5669355-4 (Version None)
Quarter: 2008Q1

REPORT INFORMATION
  Report Type: 
  Country: None (occurrence: None)
  Receive Date: 20080317
  Receipt Date: 20080307
  Transmission Date: 20080703
  Serious: Yes (Disabling)
  Sender: FDA-Public Use
  Company Number: FR-MERCK-0803FRA00013

PATIENT
  Age: 80 Year
  Sex: Female

DRUGS (4)
  1. VYTORIN [Suspect]
     Indication: DYSLIPIDAEMIA
     Route: 048
     Dates: start: 20070101, end: 20080201
  2. INSULIN [Concomitant]
     Indication: DIABETES MELLITUS
     Route: 051
  3. FLUINDIONE [Concomitant]
     Indication: PROPHYLAXIS
     Route: 048
  4. [THERAPY UNSPECIFIED] [Suspect]
     Indication: DYSLIPIDAEMIA
     Route: 048

REACTIONS (3)
  - HAEMATOMA [None]
  - TENDON RUPTURE [None]
  - TENDONITIS [None]
